FAERS Safety Report 5009407-5 (Version None)
Quarter: 2006Q2

REPORT INFORMATION
  Report Type: 
  Country: None (occurrence: None)
  Receive Date: 20060524
  Receipt Date: 20060512
  Transmission Date: 20061013
  Serious: Yes (Other)
  Sender: FDA-Public Use
  Company Number: DE-JNJFOC-20060503441

PATIENT
  Age: 60 Year
  Sex: Female

DRUGS (10)
  1. HALDOL [Suspect]
     Indication: SCHIZOAFFECTIVE DISORDER
  2. RISPERDAL [Suspect]
     Indication: SCHIZOAFFECTIVE DISORDER
     Dosage: INCREASING STEP-WISE TO 6 MG DAILY
  3. QUILONORM [Concomitant]
  4. ZYPREXA [Concomitant]
  5. SEROQUEL [Concomitant]
     Dosage: DOSE WAS DECREASED FURTHER (UNSPECIFIED DOSE)
  6. SEROQUEL [Concomitant]
     Dosage: DOSE WAS DECREASED (UNSPECIFIED)
  7. SEROQUEL [Concomitant]
  8. CLOZAPINE [Concomitant]
  9. CLOZAPINE [Concomitant]
  10. TEMESTA [Concomitant]

REACTIONS (14)
  - AKATHISIA [None]
  - ASTHENIA [None]
  - DELIRIUM [None]
  - DISORIENTATION [None]
  - DISTURBANCE IN ATTENTION [None]
  - ENCEPHALOPATHY [None]
  - GAIT DISTURBANCE [None]
  - HALLUCINATION [None]
  - MEMORY IMPAIRMENT [None]
  - NEUROLEPTIC MALIGNANT SYNDROME [None]
  - PSYCHOTIC DISORDER [None]
  - RESTLESSNESS [None]
  - SALIVARY HYPERSECRETION [None]
  - TREMOR [None]
